FAERS Safety Report 21138471 (Version 5)
Quarter: 2022Q4

REPORT INFORMATION
  Report Type: Report from Study
  Country: DE (occurrence: DE)
  Receive Date: 20220727
  Receipt Date: 20221129
  Transmission Date: 20230112
  Serious: Yes (Hospitalization, Other)
  Sender: FDA-Public Use
  Company Number: DE-002147023-PHHY2018DE003365

PATIENT
  Sex: Female
  Weight: 73 kg

DRUGS (6)
  1. LETROZOLE [Suspect]
     Active Substance: LETROZOLE
     Indication: Breast cancer metastatic
     Dosage: 2.5 MILLIGRAM, QD (2.5 MG, QD)
     Route: 048
     Dates: start: 20180319, end: 20180729
  2. KISQALI [Suspect]
     Active Substance: RIBOCICLIB
     Indication: Breast cancer metastatic
     Dosage: 600 MG, QD (21 DAYS ON, 07 DAYS OFF)
     Route: 048
     Dates: start: 20180319, end: 20180603
  3. CANDESARTAN [Concomitant]
     Active Substance: CANDESARTAN
     Indication: Hypertension
     Dosage: 1 DOSAGE FORM, QD (1 DF, 1)
     Route: 048
  4. METOPROLOL [Concomitant]
     Active Substance: METOPROLOL
     Indication: Hypertension
     Dosage: 1 DOSAGE FORM, QD (1 DF, 1)
     Route: 048
     Dates: start: 20200616
  5. AMLODIPINE [Concomitant]
     Active Substance: AMLODIPINE BESYLATE
     Indication: Hypertension
     Dosage: 0.5 DOSAGE FORM (0.5 DF, UNK)
     Route: 048
     Dates: start: 20110427
  6. PALBOCICLIB [Concomitant]
     Active Substance: PALBOCICLIB
     Indication: Breast cancer metastatic
     Dosage: 75 MILLIGRAM, QD SCHEMA 21 DAY INTAKE 7 DAY PAUSE
     Route: 048
     Dates: start: 20220408

REACTIONS (5)
  - Gastrointestinal disorder [Recovered/Resolved]
  - Blood pressure increased [Recovered/Resolved]
  - Spinal pain [Not Recovered/Not Resolved]
  - Fatigue [Not Recovered/Not Resolved]
  - Weight decreased [Recovering/Resolving]

NARRATIVE: CASE EVENT DATE: 20180403
